FAERS Safety Report 5339903-2 (Version None)
Quarter: 2007Q2

REPORT INFORMATION
  Report Type: 
  Country: None (occurrence: None)
  Receive Date: 20070529
  Receipt Date: 20070516
  Transmission Date: 20071010
  Serious: Yes (Death)
  Sender: FDA-Public Use
  Company Number: 2007EN000144

PATIENT
  Age: 23 Year
  Sex: Male
  Weight: 68.0396 kg

DRUGS (3)
  1. OPANA ER [Suspect]
     Indication: BACK PAIN
     Dosage: 10 MG; BID
     Dates: start: 20070201
  2. ALCOHOL [Suspect]
     Indication: ALCOHOL USE
     Dosage: PO
     Route: 048
     Dates: end: 20070101
  3. OXYCODONE HCL [Concomitant]

REACTIONS (1)
  - CONVULSION [None]
